FAERS Safety Report 4374523-8 (Version None)
Quarter: 2004Q2

REPORT INFORMATION
  Report Type: 
  Country: None (occurrence: None)
  Receive Date: 20040603
  Receipt Date: 20040513
  Transmission Date: 20050107
  Serious: Yes (Hospitalization)
  Sender: FDA-Public Use
  Company Number: JP_040503152

PATIENT
  Age: 47 Year
  Sex: Male

DRUGS (2)
  1. DOBUTREX [Suspect]
  2. DOPAMINE HCL [Concomitant]

REACTIONS (4)
  - ATRIAL FIBRILLATION [None]
  - CIRCULATORY COLLAPSE [None]
  - DIASTOLIC DYSFUNCTION [None]
  - TACHYCARDIA [None]
